FAERS Safety Report 21446788 (Version 1)
Quarter: 2022Q4

REPORT INFORMATION
  Report Type: Spontaneous
  Country: US (occurrence: None)
  Receive Date: 20221011
  Receipt Date: 20221011
  Transmission Date: 20230112
  Serious: Yes (Hospitalization)
  Sender: FDA-Public Use
  Company Number: None

PATIENT
  Age: 72 Year
  Sex: Male

DRUGS (1)
  1. EMPAGLIFLOZIN [Suspect]
     Active Substance: EMPAGLIFLOZIN
     Indication: Diabetes mellitus
     Dosage: FREQUENCY : DAILY;?
     Dates: start: 20190802, end: 20211213

REACTIONS (5)
  - Malaise [None]
  - COVID-19 [None]
  - Respiratory failure [None]
  - Diabetic ketoacidosis [None]
  - Anion gap [None]

NARRATIVE: CASE EVENT DATE: 20211213
